FAERS Safety Report 6372724-0 (Version None)
Quarter: 2009Q3

REPORT INFORMATION
  Report Type: 
  Country: None (occurrence: None)
  Receive Date: 20090924
  Receipt Date: 20090410
  Transmission Date: 20100115
  Serious: Yes (Other)
  Sender: FDA-Public Use
  Company Number: US-ASTRAZENECA-2008UW27572

PATIENT
  Sex: Male

DRUGS (5)
  1. SEROQUEL [Suspect]
     Indication: SCHIZOPHRENIA
     Dosage: 200 MG, 300 MG
     Route: 048
     Dates: start: 20000101, end: 20070101
  2. SEROQUEL [Suspect]
     Indication: BIPOLAR I DISORDER
     Dosage: 200 MG, 300 MG
     Route: 048
     Dates: start: 20000101, end: 20070101
  3. HALDOL [Concomitant]
  4. RISPERDAL [Concomitant]
  5. ZYPREXA [Concomitant]

REACTIONS (2)
  - DIABETES MELLITUS [None]
  - TARDIVE DYSKINESIA [None]
